FAERS Safety Report 9479137 (Version 2)
Quarter: 2013Q3

REPORT INFORMATION
  Report Type: Report from Study
  Country: FR (occurrence: FR)
  Receive Date: 20130827
  Receipt Date: 20130827
  Transmission Date: 20140515
  Serious: Yes (Hospitalization)
  Sender: FDA-Public Use
  Company Number: FR-BRISTOL-MYERS SQUIBB COMPANY-15177132

PATIENT
  Age: 36 Year
  Sex: Male

DRUGS (8)
  1. WARFARIN SODIUM [Suspect]
     Indication: EMBOLISM
     Dosage: INTERRUPTED ON 30JUN2010. RESTARTED ON 03JUL10 AT 4MG?NO OF COURSE: 1?6MG SINCE 30JUN2010
     Route: 048
     Dates: start: 20100624
  2. ENOXAPARIN SODIUM [Suspect]
     Indication: EMBOLISM
     Dosage: INTERUPTED ON 30JUN10. NO OF COURSE: 2
     Route: 030
     Dates: start: 20100624
  3. PLACEBO [Suspect]
     Indication: EMBOLISM
     Dosage: API/PLA: 03JUL10,PO,WAR/PLA: 03JUL10-CONT,PO, ENO/PLA: 24JUN10-30JUN10,IM
     Dates: start: 2010
  4. ESOMEPRAZOLE [Concomitant]
     Dates: start: 20100624, end: 20100801
  5. PAROXETINE [Concomitant]
  6. TRAMADOL [Concomitant]
     Dates: start: 20100623, end: 20100713
  7. AUGMENTIN [Concomitant]
     Dates: start: 20100624, end: 20100709
  8. PARACETAMOL [Concomitant]
     Dates: start: 20100623

REACTIONS (2)
  - Haemothorax [Recovered/Resolved]
  - Pulmonary embolism [Recovered/Resolved]
